FAERS Safety Report 25020987 (Version 1)
Quarter: 2025Q1

REPORT INFORMATION
  Report Type: Spontaneous
  Country: CN (occurrence: CN)
  Receive Date: 20250227
  Receipt Date: 20250227
  Transmission Date: 20250409
  Serious: Yes (Hospitalization)
  Sender: BOEHRINGER INGELHEIM
  Company Number: CN-BoehringerIngelheim-2025-BI-011105

PATIENT
  Age: 81 Year
  Sex: Male
  Weight: 70.000 kg

DRUGS (3)
  1. ATROVENT [Suspect]
     Active Substance: IPRATROPIUM BROMIDE
     Indication: Chronic obstructive pulmonary disease
     Dates: start: 20211015, end: 20211023
  2. PULMICORT RESPULES [Suspect]
     Active Substance: BUDESONIDE
     Indication: Chronic obstructive pulmonary disease
     Dosage: DOSAGE FORM OF BUDESONIDE SUSPENSION FOR INHALATION: SUSPENSION
     Dates: start: 20211015, end: 20211023
  3. ALBUTEROL SULFATE [Suspect]
     Active Substance: ALBUTEROL SULFATE
     Indication: Chronic obstructive pulmonary disease
     Dates: start: 20211015, end: 20211023

REACTIONS (3)
  - Micturition urgency [Recovering/Resolving]
  - Dysuria [Recovering/Resolving]
  - Blood pressure increased [Recovering/Resolving]

NARRATIVE: CASE EVENT DATE: 20211024
